FAERS Safety Report 7754534-2 (Version None)
Quarter: 2011Q3

REPORT INFORMATION
  Report Type: 
  Country: None (occurrence: None)
  Receive Date: 20110915
  Receipt Date: 20110222
  Transmission Date: 20111222
  Serious: No
  Sender: FDA-Public Use
  Company Number: US-BAYER-2011-017739

PATIENT
  Age: 45 Year
  Sex: Female

DRUGS (3)
  1. TRAVATAN [Concomitant]
  2. ALLEGRA [Concomitant]
  3. ULTRAVIST 150 [Suspect]
     Indication: COMPUTERISED TOMOGRAM
     Dosage: 100 ML, UNK
     Dates: start: 20110222

REACTIONS (2)
  - PRURITUS [None]
  - URTICARIA [None]
